FAERS Safety Report 8485416 (Version 8)
Quarter: 2013Q2

REPORT INFORMATION
  Report Type: Spontaneous
  Country: US (occurrence: US)
  Receive Date: 20120330
  Receipt Date: 20130408
  Transmission Date: 20140414
  Serious: Yes (Hospitalization, Disabling, Other)
  Sender: FDA-Public Use
  Company Number: US-009507513-1203USA03373

PATIENT
  Sex: Female

DRUGS (4)
  1. FOSAMAX [Suspect]
     Indication: OSTEOPOROSIS
     Dosage: 70 MG, QW
     Route: 048
     Dates: start: 200407, end: 201005
  2. ALENDRONATE SODIUM [Suspect]
     Indication: OSTEOPOROSIS
     Dosage: 70 MG, QW
     Route: 048
     Dates: start: 200205
  3. ALENDRONATE SODIUM [Suspect]
     Indication: OSTEOPENIA
  4. FOSAMAX PLUS D [Suspect]
     Indication: OSTEOPOROSIS
     Dosage: 70  MG, QW
     Route: 048
     Dates: start: 200704, end: 200901

REACTIONS (41)
  - Femur fracture [Not Recovered/Not Resolved]
  - Intramedullary rod insertion [Not Recovered/Not Resolved]
  - Low turnover osteopathy [Not Recovered/Not Resolved]
  - Cervical vertebral fracture [Unknown]
  - Pneumonia staphylococcal [Unknown]
  - Uterine disorder [Unknown]
  - Hypotension [Unknown]
  - Post procedural haemorrhage [Unknown]
  - Gingival disorder [Unknown]
  - Osteoarthritis [Not Recovered/Not Resolved]
  - Glaucoma [Unknown]
  - Haemoglobin decreased [Unknown]
  - Tooth disorder [Unknown]
  - Pulmonary fibrosis [Unknown]
  - Functional residual capacity decreased [Unknown]
  - Osteoarthritis [Unknown]
  - Muscle atrophy [Unknown]
  - Spinal disorder [Unknown]
  - Pathological fracture [Unknown]
  - Spinal compression fracture [Unknown]
  - Vitamin B12 deficiency [Unknown]
  - Vitamin D deficiency [Unknown]
  - Depression [Unknown]
  - Kyphosis [Unknown]
  - Fall [Unknown]
  - Laceration [Unknown]
  - Cellulitis [Unknown]
  - Hyperkalaemia [Unknown]
  - Hyperlipidaemia [Unknown]
  - Rheumatoid arthritis [Unknown]
  - Blood pressure increased [Not Recovered/Not Resolved]
  - Spondylolisthesis [Unknown]
  - Cervical spinal stenosis [Unknown]
  - Spinal fracture [Unknown]
  - Ankylosing spondylitis [Unknown]
  - Osteoporosis [Unknown]
  - Dental implantation [Unknown]
  - Dental implantation [Unknown]
  - Dental implantation [Unknown]
  - Back pain [Not Recovered/Not Resolved]
  - Back pain [Unknown]
